FAERS Safety Report 6951500-1 (Version None)
Quarter: 2010Q3

REPORT INFORMATION
  Report Type: 
  Country: None (occurrence: None)
  Receive Date: 20100828
  Receipt Date: 20100324
  Transmission Date: 20110219
  Serious: No
  Sender: FDA-Public Use
  Company Number: US-ABBOTT-10P-163-0635254-00

PATIENT
  Sex: Female
  Weight: 88.53 kg

DRUGS (4)
  1. NIASPAN [Suspect]
     Indication: BLOOD CHOLESTEROL
     Dates: start: 20100309
  2. WARFIN [Concomitant]
     Indication: WEGENER'S GRANULOMATOSIS
  3. AMBIEN [Concomitant]
     Indication: INSOMNIA
  4. MVI VITAMIN [Concomitant]
     Indication: PRODUCT USED FOR UNKNOWN INDICATION

REACTIONS (3)
  - FLUSHING [None]
  - GENERALISED ERYTHEMA [None]
  - SKIN BURNING SENSATION [None]
